FAERS Safety Report 5782967-2 (Version None)
Quarter: 2008Q2

REPORT INFORMATION
  Report Type: 
  Country: None (occurrence: None)
  Receive Date: 20080619
  Receipt Date: 20080619
  Transmission Date: 20081010
  Serious: No
  Sender: FDA-Public Use
  Company Number: None

PATIENT
  Age: 32 Year
  Sex: Male

DRUGS (1)
  1. VANCOMYCIN HCL [Suspect]
     Dosage: ONE GRAM ONE TIME DOSE IV PIGGYBACK
     Route: 042
     Dates: start: 20080528, end: 20080528

REACTIONS (5)
  - BODY TEMPERATURE INCREASED [None]
  - DYSPNOEA [None]
  - FLUSHING [None]
  - NONSPECIFIC REACTION [None]
  - TACHYCARDIA [None]
